FAERS Safety Report 21663690 (Version 4)
Quarter: 2023Q2

REPORT INFORMATION
  Report Type: Spontaneous
  Country: GB (occurrence: GB)
  Receive Date: 20221130
  Receipt Date: 20230411
  Transmission Date: 20230721
  Serious: Yes (Hospitalization, Other)
  Sender: FDA-Public Use
  Company Number: None

PATIENT
  Age: 91 Year
  Sex: Male
  Weight: 70 kg

DRUGS (3)
  1. EDOXABAN TOSYLATE [Suspect]
     Active Substance: EDOXABAN TOSYLATE
     Indication: Atrial fibrillation
     Dosage: 30 MG, QD
     Route: 048
     Dates: start: 20191106, end: 20201025
  2. MEMANTINE [Concomitant]
     Active Substance: MEMANTINE
     Indication: Dementia Alzheimer^s type
     Dosage: 10 MG, QD
     Route: 065
     Dates: start: 20200309
  3. ZOPICLONE [Concomitant]
     Active Substance: ZOPICLONE
     Indication: Insomnia
     Dosage: 7.5 MG, QD (AT NIGHT WHEN REQUIRED FOR SLEEPINGCORRECT ON 08/07/2020)
     Route: 065
     Dates: start: 20191106

REACTIONS (12)
  - Diarrhoea [Unknown]
  - Faeces discoloured [Unknown]
  - Anaemia [Unknown]
  - Renal haemorrhage [Unknown]
  - Internal haemorrhage [Unknown]
  - Dehydration [Unknown]
  - Cardiac disorder [Unknown]
  - Oxygen saturation decreased [Unknown]
  - Renal impairment [Unknown]
  - Sepsis [Unknown]
  - Cerebrovascular accident [Unknown]
  - Drug monitoring procedure not performed [Unknown]

NARRATIVE: CASE EVENT DATE: 20200801
